FAERS Safety Report 17273780 (Version 1)
Quarter: 2020Q1

REPORT INFORMATION
  Report Type: Spontaneous
  Country: US (occurrence: US)
  Receive Date: 20200115
  Receipt Date: 20200115
  Transmission Date: 20200409
  Serious: No
  Sender: FDA-Public Use
  Company Number: US-PERRIGO-19US011854

PATIENT
  Age: 78 Year
  Sex: Male
  Weight: 95.24 kg

DRUGS (4)
  1. ANTIHYPERTENSIVES [Concomitant]
     Active Substance: UNSPECIFIED INGREDIENT
     Indication: HYPERTENSION
     Dosage: UNK
     Route: 065
     Dates: start: 2012
  2. STATIN                             /00036501/ [Concomitant]
     Active Substance: NYSTATIN
     Indication: ROUTINE HEALTH MAINTENANCE
     Dosage: UNK
     Route: 065
     Dates: start: 2012
  3. IBUPROFEN. [Suspect]
     Active Substance: IBUPROFEN
     Dosage: 400 MG, SINGLE
     Route: 048
     Dates: start: 20190930, end: 20190930
  4. IBUPROFEN. [Suspect]
     Active Substance: IBUPROFEN
     Indication: ORAL PAIN
     Dosage: 400 MG, SINGLE
     Route: 048
     Dates: start: 20190929, end: 20190929

REACTIONS (2)
  - Expired product administered [Recovered/Resolved]
  - Therapeutic product effect incomplete [Unknown]

NARRATIVE: CASE EVENT DATE: 20190929
